FAERS Safety Report 25037430 (Version 1)
Quarter: 2025Q1

REPORT INFORMATION
  Report Type: Spontaneous
  Country: ES (occurrence: ES)
  Receive Date: 20250304
  Receipt Date: 20250304
  Transmission Date: 20250408
  Serious: Yes (Hospitalization)
  Sender: MYLAN
  Company Number: None

PATIENT
  Age: 78 Year
  Sex: Male

DRUGS (12)
  1. PREGABALIN [Suspect]
     Active Substance: PREGABALIN
     Indication: Pain
     Dosage: 75 MILLIGRAM, BID
     Dates: start: 20240123, end: 20240201
  2. PREGABALIN [Suspect]
     Active Substance: PREGABALIN
     Dosage: 75 MILLIGRAM, BID
     Route: 048
     Dates: start: 20240123, end: 20240201
  3. PREGABALIN [Suspect]
     Active Substance: PREGABALIN
     Dosage: 75 MILLIGRAM, BID
     Route: 048
     Dates: start: 20240123, end: 20240201
  4. PREGABALIN [Suspect]
     Active Substance: PREGABALIN
     Dosage: 75 MILLIGRAM, BID
     Dates: start: 20240123, end: 20240201
  5. METAMIZOLE [Suspect]
     Active Substance: METAMIZOLE
     Indication: Pain
     Dates: start: 20240123, end: 20240201
  6. METAMIZOLE [Suspect]
     Active Substance: METAMIZOLE
     Route: 048
     Dates: start: 20240123, end: 20240201
  7. METAMIZOLE [Suspect]
     Active Substance: METAMIZOLE
     Route: 048
     Dates: start: 20240123, end: 20240201
  8. METAMIZOLE [Suspect]
     Active Substance: METAMIZOLE
     Dates: start: 20240123, end: 20240201
  9. ASPIRIN [Suspect]
     Active Substance: ASPIRIN
     Indication: Myocardial ischaemia
     Dosage: 100 MILLIGRAM, QD
     Dates: start: 20240121, end: 20240201
  10. ASPIRIN [Suspect]
     Active Substance: ASPIRIN
     Dosage: 100 MILLIGRAM, QD
     Route: 048
     Dates: start: 20240121, end: 20240201
  11. ASPIRIN [Suspect]
     Active Substance: ASPIRIN
     Dosage: 100 MILLIGRAM, QD
     Route: 048
     Dates: start: 20240121, end: 20240201
  12. ASPIRIN [Suspect]
     Active Substance: ASPIRIN
     Dosage: 100 MILLIGRAM, QD
     Dates: start: 20240121, end: 20240201

REACTIONS (1)
  - Toxic skin eruption [Recovered/Resolved]

NARRATIVE: CASE EVENT DATE: 20240127
